FAERS Safety Report 21516242 (Version 1)
Quarter: 2022Q4

REPORT INFORMATION
  Report Type: Spontaneous
  Country: TR (occurrence: TR)
  Receive Date: 20221027
  Receipt Date: 20221027
  Transmission Date: 20230113
  Serious: Yes (Hospitalization, Other)
  Sender: FDA-Public Use
  Company Number: TR-HALEON-TRCH2022GSK040680

PATIENT

DRUGS (1)
  1. IBUPROFEN\PSEUDOEPHEDRINE HYDROCHLORIDE [Suspect]
     Active Substance: IBUPROFEN\PSEUDOEPHEDRINE HYDROCHLORIDE
     Indication: Product used for unknown indication
     Dosage: UNK (IBUPROFEN (200 MG)?+?PSEUDOEPHEDRINE HYDROCHLORIDE (30 MG))
     Route: 048

REACTIONS (10)
  - Substance-induced psychotic disorder [Recovered/Resolved]
  - Disturbance in attention [Recovered/Resolved]
  - Hallucinations, mixed [Recovered/Resolved]
  - Somnolence [Recovered/Resolved]
  - Insomnia [Recovered/Resolved]
  - Soliloquy [Recovered/Resolved]
  - Libido increased [Recovered/Resolved]
  - Tangentiality [Recovered/Resolved]
  - Delusion of reference [Recovered/Resolved]
  - Irritability [Recovered/Resolved]
